FAERS Safety Report 22601113 (Version 1)
Quarter: 2023Q2

REPORT INFORMATION
  Report Type: Spontaneous
  Country: US (occurrence: US)
  Receive Date: 20230614
  Receipt Date: 20230614
  Transmission Date: 20230721
  Serious: No
  Sender: FDA-Public Use
  Company Number: US-RIGEL Pharmaceuticals, INC,- 2022FOS000743

PATIENT
  Age: 68 Year
  Sex: Female

DRUGS (2)
  1. TAVALISSE [Suspect]
     Active Substance: FOSTAMATINIB
     Indication: Thrombocytopenia
     Dosage: 100 MG, BID
     Route: 048
     Dates: start: 20220908
  2. ELIQUIS [Concomitant]
     Active Substance: APIXABAN
     Indication: Atrial fibrillation
     Dosage: UNK

REACTIONS (6)
  - Faeces soft [Unknown]
  - Urinary incontinence [Unknown]
  - Platelet count [Unknown]
  - Platelet count decreased [Unknown]
  - Contusion [Unknown]
  - Emotional disorder [Unknown]

NARRATIVE: CASE EVENT DATE: 20220901
